FAERS Safety Report 8896226 (Version 7)
Quarter: 2017Q2

REPORT INFORMATION
  Report Type: Spontaneous
  Country: US (occurrence: US)
  Receive Date: 20121108
  Receipt Date: 20170626
  Transmission Date: 20170830
  Serious: Yes (Hospitalization, Disabling, Other)
  Sender: FDA-Public Use
  Company Number: US-009507513-1206USA01472

PATIENT
  Sex: Female
  Weight: 85.71 kg

DRUGS (5)
  1. FOSAMAX [Suspect]
     Active Substance: ALENDRONATE SODIUM
     Indication: OSTEOPOROSIS
     Dosage: 10 MG, UNK
     Route: 048
     Dates: start: 19990122, end: 200712
  2. FOSAMAX [Suspect]
     Active Substance: ALENDRONATE SODIUM
     Dosage: 70 MG, QW
     Route: 048
  3. ALENDRONATE SODIUM. [Suspect]
     Active Substance: ALENDRONATE SODIUM
     Indication: OSTEOPOROSIS
     Dosage: 70 MG, UNK
     Route: 048
     Dates: start: 2008, end: 2010
  4. VITAMINS (UNSPECIFIED) [Concomitant]
     Active Substance: VITAMINS
     Indication: PRODUCT USED FOR UNKNOWN INDICATION
  5. LIPITOR [Concomitant]
     Active Substance: ATORVASTATIN CALCIUM
     Indication: HYPERLIPIDAEMIA
     Dosage: 40 MG, HS
     Route: 048

REACTIONS (48)
  - Transfusion [Unknown]
  - Choroidal detachment [Unknown]
  - Cerebrovascular accident [Unknown]
  - Micturition disorder [Unknown]
  - Urinary incontinence [Unknown]
  - Rash [Unknown]
  - Femur fracture [Unknown]
  - Fall [Unknown]
  - Hip arthroplasty [Unknown]
  - Eye excision [Unknown]
  - Surgery [Unknown]
  - Prosthesis implantation [Unknown]
  - Cerebrovascular accident [Unknown]
  - Ankle fracture [Unknown]
  - Gastrointestinal disorder [Unknown]
  - Adverse event [Unknown]
  - Aortic stenosis [Unknown]
  - Aortic valve incompetence [Unknown]
  - Electrocardiogram ST segment abnormal [Unknown]
  - Vulvovaginal candidiasis [Unknown]
  - Glucose tolerance impaired [Unknown]
  - Blood calcium decreased [Unknown]
  - Mammogram abnormal [Unknown]
  - Rash [Unknown]
  - Nausea [Unknown]
  - Cough [Unknown]
  - Osteopenia [Unknown]
  - Anaemia [Unknown]
  - Ear infection [Unknown]
  - Osteoarthritis [Unknown]
  - Umbilical hernia [Unknown]
  - Gastrooesophageal reflux disease [Unknown]
  - Seizure [Unknown]
  - Aortic valve replacement [Unknown]
  - Gait disturbance [Unknown]
  - Bladder disorder [Unknown]
  - Pedal pulse decreased [Unknown]
  - Open reduction of fracture [Unknown]
  - Femur fracture [Unknown]
  - Anxiety [Unknown]
  - Cellulitis [Unknown]
  - Carotid bruit [Unknown]
  - Back pain [Unknown]
  - Pelvic fracture [Unknown]
  - Spinal column stenosis [Unknown]
  - Rotator cuff syndrome [Unknown]
  - Hyperglycaemia [Unknown]
  - Oedema peripheral [Unknown]

NARRATIVE: CASE EVENT DATE: 200006
